FAERS Safety Report 9103711 (Version 2)
Quarter: 2013Q1

REPORT INFORMATION
  Report Type: Spontaneous
  Country: US (occurrence: US)
  Receive Date: 20130219
  Receipt Date: 20130308
  Transmission Date: 20140127
  Serious: Yes (Other)
  Sender: FDA-Public Use
  Company Number: US-BAYER-2013-018664

PATIENT
  Age: 48 Year
  Sex: Female

DRUGS (2)
  1. MIRENA [Suspect]
     Indication: PROGESTIN THERAPY
     Dosage: 20 MCG/24HR, CONT
     Route: 015
     Dates: start: 20130130, end: 20130227
  2. MIRENA [Suspect]
     Indication: MENORRHAGIA

REACTIONS (5)
  - Genital haemorrhage [None]
  - Pain [Recovered/Resolved]
  - Pelvic pain [None]
  - Off label use [None]
  - Device expulsion [None]
